FAERS Safety Report 15748470 (Version 1)
Quarter: 2018Q4

REPORT INFORMATION
  Report Type: Spontaneous
  Country: US (occurrence: US)
  Receive Date: 20181221
  Receipt Date: 20181221
  Transmission Date: 20190205
  Serious: Yes (Hospitalization, Other)
  Sender: FDA-Public Use
  Company Number: US-APOTEX-2018AP027387

PATIENT
  Age: 26 Year
  Sex: Male

DRUGS (9)
  1. TRANEXAMIC ACID. [Suspect]
     Active Substance: TRANEXAMIC ACID
     Indication: DISSEMINATED INTRAVASCULAR COAGULATION
  2. TRANEXAMIC ACID. [Suspect]
     Active Substance: TRANEXAMIC ACID
     Indication: COAGULOPATHY
  3. VANCOMYCIN [Concomitant]
     Active Substance: VANCOMYCIN
     Indication: HAEMOPHAGOCYTIC LYMPHOHISTIOCYTOSIS
     Dosage: UNK, UNKNOWN
     Route: 042
  4. CEFEPIME [Concomitant]
     Active Substance: CEFEPIME HYDROCHLORIDE
     Indication: HAEMOPHAGOCYTIC LYMPHOHISTIOCYTOSIS
     Dosage: UNK, UNKNOWN
     Route: 065
  5. MICAFUNGIN. [Concomitant]
     Active Substance: MICAFUNGIN SODIUM
     Indication: HAEMOPHAGOCYTIC LYMPHOHISTIOCYTOSIS
     Dosage: UNK, UNKNOWN
     Route: 065
  6. DEXAMETHASONE. [Concomitant]
     Active Substance: DEXAMETHASONE
     Indication: HAEMOPHAGOCYTIC LYMPHOHISTIOCYTOSIS
     Dosage: UNK, UNKNOWN
     Route: 065
  7. LEVETIRACETAM. [Concomitant]
     Active Substance: LEVETIRACETAM
     Indication: MYOCLONUS
     Dosage: UNK, UNKNOWN
     Route: 065
  8. DOXYCYCLINE. [Concomitant]
     Active Substance: DOXYCYCLINE
     Indication: HUMAN EHRLICHIOSIS
     Dosage: UNK, UNKNOWN
     Route: 065
  9. ETOPOSIDE. [Concomitant]
     Active Substance: ETOPOSIDE
     Indication: HAEMOPHAGOCYTIC LYMPHOHISTIOCYTOSIS
     Dosage: UNK, UNKNOWN
     Route: 065

REACTIONS (2)
  - Haemorrhagic transformation stroke [Unknown]
  - Ischaemic cerebral infarction [Unknown]
